FAERS Safety Report 5237152-X (Version None)
Quarter: 2007Q1

REPORT INFORMATION
  Report Type: 
  Country: None (occurrence: None)
  Receive Date: 20070213
  Receipt Date: 20070205
  Transmission Date: 20070707
  Serious: Yes (Other)
  Sender: FDA-Public Use
  Company Number: AU-GLAXOSMITHKLINE-B0457279A

PATIENT
  Age: 9 Year
  Sex: Female
  Weight: 34.2 kg

DRUGS (3)
  1. LAMICTAL [Suspect]
     Dates: start: 20070108
  2. KEPPRA [Suspect]
     Indication: DRUG USE FOR UNKNOWN INDICATION
     Dates: end: 20070113
  3. FISH OIL [Concomitant]

REACTIONS (2)
  - AGGRESSION [None]
  - AGITATION [None]
